FAERS Safety Report 5103836-7 (Version None)
Quarter: 2006Q3

REPORT INFORMATION
  Report Type: 
  Country: None (occurrence: None)
  Receive Date: 20060911
  Receipt Date: 20060828
  Transmission Date: 20061208
  Serious: Yes (Other)
  Sender: FDA-Public Use
  Company Number: 2006106495

PATIENT
  Age: 50 Year
  Sex: Male

DRUGS (1)
  1. SOLU-MEDROL [Suspect]
     Indication: IDIOPATHIC THROMBOCYTOPENIC PURPURA
     Dosage: 80 MG (80 MG, 1 IN1  D), INTRAVENOUS
     Route: 042
     Dates: start: 20060718, end: 20060812

REACTIONS (3)
  - ABASIA [None]
  - AMYOTROPHY [None]
  - MUSCULAR WEAKNESS [None]
